FAERS Safety Report 9085380 (Version 1)
Quarter: 2013Q1

REPORT INFORMATION
  Report Type: Spontaneous
  Country: US (occurrence: US)
  Receive Date: 20130218
  Receipt Date: 20130218
  Transmission Date: 20140127
  Serious: Yes (Other)
  Sender: FDA-Public Use
  Company Number: PHEH2013US003590

PATIENT
  Sex: Female

DRUGS (3)
  1. VALSARTAN, AMLODIPINE [Suspect]
     Dosage: UNK UKN, UNK
  2. WATER PILLS [Concomitant]
     Dosage: UNK UKN, UNK
  3. VITAMINS [Concomitant]
     Dosage: UNK UKN, UNK

REACTIONS (3)
  - Throat tightness [Unknown]
  - Dry mouth [Unknown]
  - Rash [Unknown]
